FAERS Safety Report 24676577 (Version 12)
Quarter: 2025Q2

REPORT INFORMATION
  Report Type: Spontaneous
  Country: FR (occurrence: FR)
  Receive Date: 20241128
  Receipt Date: 20250513
  Transmission Date: 20250717
  Serious: Yes (Other)
  Sender: MYLAN
  Company Number: None

PATIENT
  Age: 57 Year
  Sex: Female
  Weight: 67 kg

DRUGS (148)
  1. VALACYCLOVIR HYDROCHLORIDE [Suspect]
     Active Substance: VALACYCLOVIR HYDROCHLORIDE
     Indication: Infection prophylaxis
     Dosage: 1 GRAM, QD
     Dates: start: 20240812
  2. VALACYCLOVIR HYDROCHLORIDE [Suspect]
     Active Substance: VALACYCLOVIR HYDROCHLORIDE
     Dosage: 1 GRAM, QD
     Dates: start: 20240812
  3. VALACYCLOVIR HYDROCHLORIDE [Suspect]
     Active Substance: VALACYCLOVIR HYDROCHLORIDE
     Dosage: 1 GRAM, QD
     Route: 048
     Dates: start: 20240812
  4. VALACYCLOVIR HYDROCHLORIDE [Suspect]
     Active Substance: VALACYCLOVIR HYDROCHLORIDE
     Dosage: 1 GRAM, QD
     Route: 048
     Dates: start: 20240812
  5. VALACYCLOVIR HYDROCHLORIDE [Suspect]
     Active Substance: VALACYCLOVIR HYDROCHLORIDE
     Dosage: 1 GRAM, QD
  6. VALACYCLOVIR HYDROCHLORIDE [Suspect]
     Active Substance: VALACYCLOVIR HYDROCHLORIDE
     Dosage: 1 GRAM, QD
  7. VALACYCLOVIR HYDROCHLORIDE [Suspect]
     Active Substance: VALACYCLOVIR HYDROCHLORIDE
     Dosage: 1 GRAM, QD
     Route: 048
  8. VALACYCLOVIR HYDROCHLORIDE [Suspect]
     Active Substance: VALACYCLOVIR HYDROCHLORIDE
     Dosage: 1 GRAM, QD
     Route: 048
  9. METHYLPREDNISOLONE [Suspect]
     Active Substance: METHYLPREDNISOLONE
     Indication: Hodgkin^s disease
     Route: 042
     Dates: start: 20240812
  10. METHYLPREDNISOLONE [Suspect]
     Active Substance: METHYLPREDNISOLONE
     Dates: start: 20240812
  11. METHYLPREDNISOLONE [Suspect]
     Active Substance: METHYLPREDNISOLONE
     Dates: start: 20240812
  12. METHYLPREDNISOLONE [Suspect]
     Active Substance: METHYLPREDNISOLONE
     Route: 042
     Dates: start: 20240812
  13. METHYLPREDNISOLONE [Suspect]
     Active Substance: METHYLPREDNISOLONE
     Dosage: 200 MILLIGRAM, QD
     Route: 042
     Dates: start: 20240812
  14. METHYLPREDNISOLONE [Suspect]
     Active Substance: METHYLPREDNISOLONE
     Dosage: 200 MILLIGRAM, QD
     Dates: start: 20240812
  15. METHYLPREDNISOLONE [Suspect]
     Active Substance: METHYLPREDNISOLONE
     Dosage: 200 MILLIGRAM, QD
     Dates: start: 20240812
  16. METHYLPREDNISOLONE [Suspect]
     Active Substance: METHYLPREDNISOLONE
     Dosage: 200 MILLIGRAM, QD
     Route: 042
     Dates: start: 20240812
  17. METHYLPREDNISOLONE [Suspect]
     Active Substance: METHYLPREDNISOLONE
     Dosage: 20 MILLIGRAM, QD
     Route: 042
  18. METHYLPREDNISOLONE [Suspect]
     Active Substance: METHYLPREDNISOLONE
     Dosage: 20 MILLIGRAM, QD
     Route: 042
  19. METHYLPREDNISOLONE [Suspect]
     Active Substance: METHYLPREDNISOLONE
     Dosage: 20 MILLIGRAM, QD
  20. METHYLPREDNISOLONE [Suspect]
     Active Substance: METHYLPREDNISOLONE
     Dosage: 20 MILLIGRAM, QD
  21. METOCLOPRAMIDE [Suspect]
     Active Substance: METOCLOPRAMIDE
     Indication: Nausea
     Dosage: 10 MILLIGRAM
     Dates: start: 20240812
  22. METOCLOPRAMIDE [Suspect]
     Active Substance: METOCLOPRAMIDE
     Dosage: 10 MILLIGRAM
     Dates: start: 20240812
  23. METOCLOPRAMIDE [Suspect]
     Active Substance: METOCLOPRAMIDE
     Dosage: 10 MILLIGRAM
     Route: 048
     Dates: start: 20240812
  24. METOCLOPRAMIDE [Suspect]
     Active Substance: METOCLOPRAMIDE
     Dosage: 10 MILLIGRAM
     Route: 048
     Dates: start: 20240812
  25. METOCLOPRAMIDE [Suspect]
     Active Substance: METOCLOPRAMIDE
     Dosage: 10 MILLIGRAM, QD
  26. METOCLOPRAMIDE [Suspect]
     Active Substance: METOCLOPRAMIDE
     Dosage: 10 MILLIGRAM, QD
  27. METOCLOPRAMIDE [Suspect]
     Active Substance: METOCLOPRAMIDE
     Dosage: 10 MILLIGRAM, QD
     Route: 048
  28. METOCLOPRAMIDE [Suspect]
     Active Substance: METOCLOPRAMIDE
     Dosage: 10 MILLIGRAM, QD
     Route: 048
  29. ACETAMINOPHEN [Suspect]
     Active Substance: ACETAMINOPHEN
     Indication: Pain
     Dosage: 1 GRAM
  30. ACETAMINOPHEN [Suspect]
     Active Substance: ACETAMINOPHEN
     Indication: Vomiting
     Dosage: 1 GRAM
  31. ACETAMINOPHEN [Suspect]
     Active Substance: ACETAMINOPHEN
     Dosage: 1 GRAM
     Route: 048
  32. ACETAMINOPHEN [Suspect]
     Active Substance: ACETAMINOPHEN
     Dosage: 1 GRAM
     Route: 048
  33. ACETAMINOPHEN [Suspect]
     Active Substance: ACETAMINOPHEN
     Dosage: 1 GRAM, QD
     Dates: start: 20240812
  34. ACETAMINOPHEN [Suspect]
     Active Substance: ACETAMINOPHEN
     Dosage: 1 GRAM, QD
     Dates: start: 20240812
  35. ACETAMINOPHEN [Suspect]
     Active Substance: ACETAMINOPHEN
     Dosage: 1 GRAM, QD
     Route: 048
     Dates: start: 20240812
  36. ACETAMINOPHEN [Suspect]
     Active Substance: ACETAMINOPHEN
     Dosage: 1 GRAM, QD
     Route: 048
     Dates: start: 20240812
  37. LANSOPRAZOLE [Suspect]
     Active Substance: LANSOPRAZOLE
     Indication: Prophylaxis against gastrointestinal ulcer
     Dosage: 15 MILLIGRAM, QD
     Dates: start: 20240909, end: 20241015
  38. LANSOPRAZOLE [Suspect]
     Active Substance: LANSOPRAZOLE
     Dosage: 15 MILLIGRAM, QD
     Dates: start: 20240909, end: 20241015
  39. LANSOPRAZOLE [Suspect]
     Active Substance: LANSOPRAZOLE
     Dosage: 15 MILLIGRAM, QD
     Route: 048
     Dates: start: 20240909, end: 20241015
  40. LANSOPRAZOLE [Suspect]
     Active Substance: LANSOPRAZOLE
     Dosage: 15 MILLIGRAM, QD
     Route: 048
     Dates: start: 20240909, end: 20241015
  41. LANSOPRAZOLE [Suspect]
     Active Substance: LANSOPRAZOLE
     Dosage: 15 MILLIGRAM, QD
     Dates: end: 20241015
  42. LANSOPRAZOLE [Suspect]
     Active Substance: LANSOPRAZOLE
     Dosage: 15 MILLIGRAM, QD
     Dates: end: 20241015
  43. LANSOPRAZOLE [Suspect]
     Active Substance: LANSOPRAZOLE
     Dosage: 15 MILLIGRAM, QD
     Route: 048
     Dates: end: 20241015
  44. LANSOPRAZOLE [Suspect]
     Active Substance: LANSOPRAZOLE
     Dosage: 15 MILLIGRAM, QD
     Route: 048
     Dates: end: 20241015
  45. POLYETHYLENE GLYCOLS [Suspect]
     Active Substance: POLYETHYLENE GLYCOLS
     Indication: Constipation
  46. POLYETHYLENE GLYCOLS [Suspect]
     Active Substance: POLYETHYLENE GLYCOLS
  47. POLYETHYLENE GLYCOLS [Suspect]
     Active Substance: POLYETHYLENE GLYCOLS
     Route: 048
  48. POLYETHYLENE GLYCOLS [Suspect]
     Active Substance: POLYETHYLENE GLYCOLS
     Route: 048
  49. POLYETHYLENE GLYCOLS [Suspect]
     Active Substance: POLYETHYLENE GLYCOLS
  50. POLYETHYLENE GLYCOLS [Suspect]
     Active Substance: POLYETHYLENE GLYCOLS
  51. POLYETHYLENE GLYCOLS [Suspect]
     Active Substance: POLYETHYLENE GLYCOLS
     Route: 048
  52. POLYETHYLENE GLYCOLS [Suspect]
     Active Substance: POLYETHYLENE GLYCOLS
     Route: 048
  53. APREPITANT [Suspect]
     Active Substance: APREPITANT
     Indication: Vomiting
     Dosage: 160 MILLIGRAM, Q2W
     Route: 048
     Dates: start: 20240812
  54. APREPITANT [Suspect]
     Active Substance: APREPITANT
     Dosage: 160 MILLIGRAM, Q2W
     Dates: start: 20240812
  55. APREPITANT [Suspect]
     Active Substance: APREPITANT
     Dosage: 160 MILLIGRAM, Q2W
     Dates: start: 20240812
  56. APREPITANT [Suspect]
     Active Substance: APREPITANT
     Dosage: 160 MILLIGRAM, Q2W
     Route: 048
     Dates: start: 20240812
  57. APREPITANT [Suspect]
     Active Substance: APREPITANT
     Dosage: 160 GRAM, QD
     Route: 048
     Dates: start: 20240812
  58. APREPITANT [Suspect]
     Active Substance: APREPITANT
     Dosage: 160 GRAM, QD
     Dates: start: 20240812
  59. APREPITANT [Suspect]
     Active Substance: APREPITANT
     Dosage: 160 GRAM, QD
     Dates: start: 20240812
  60. APREPITANT [Suspect]
     Active Substance: APREPITANT
     Dosage: 160 GRAM, QD
     Route: 048
     Dates: start: 20240812
  61. APREPITANT [Suspect]
     Active Substance: APREPITANT
     Dosage: 160 GRAM, QD
     Route: 048
  62. APREPITANT [Suspect]
     Active Substance: APREPITANT
     Dosage: 160 GRAM, QD
     Route: 048
  63. APREPITANT [Suspect]
     Active Substance: APREPITANT
     Dosage: 160 GRAM, QD
  64. APREPITANT [Suspect]
     Active Substance: APREPITANT
     Dosage: 160 GRAM, QD
  65. BLEOMYCIN SULFATE [Suspect]
     Active Substance: BLEOMYCIN SULFATE
     Indication: Hodgkin^s disease
     Dosage: 17.1 MILLIGRAM, QD
     Dates: start: 20240812, end: 20240924
  66. BLEOMYCIN SULFATE [Suspect]
     Active Substance: BLEOMYCIN SULFATE
     Dosage: 17.1 MILLIGRAM, QD
     Route: 042
     Dates: start: 20240812, end: 20240924
  67. BLEOMYCIN SULFATE [Suspect]
     Active Substance: BLEOMYCIN SULFATE
     Dosage: 17.1 MILLIGRAM, QD
     Route: 042
     Dates: start: 20240812, end: 20240924
  68. BLEOMYCIN SULFATE [Suspect]
     Active Substance: BLEOMYCIN SULFATE
     Dosage: 17.1 MILLIGRAM, QD
     Dates: start: 20240812, end: 20240924
  69. DOXORUBICIN [Suspect]
     Active Substance: DOXORUBICIN
     Indication: Hodgkin^s disease
     Dates: start: 20240812
  70. DOXORUBICIN [Suspect]
     Active Substance: DOXORUBICIN
     Dates: start: 20240812
  71. DOXORUBICIN [Suspect]
     Active Substance: DOXORUBICIN
     Route: 042
     Dates: start: 20240812
  72. DOXORUBICIN [Suspect]
     Active Substance: DOXORUBICIN
     Route: 042
     Dates: start: 20240812
  73. DOXORUBICIN [Suspect]
     Active Substance: DOXORUBICIN
  74. DOXORUBICIN [Suspect]
     Active Substance: DOXORUBICIN
  75. DOXORUBICIN [Suspect]
     Active Substance: DOXORUBICIN
     Route: 042
  76. DOXORUBICIN [Suspect]
     Active Substance: DOXORUBICIN
     Route: 042
  77. VINBLASTINE SULFATE [Suspect]
     Active Substance: VINBLASTINE SULFATE
     Indication: Hodgkin^s disease
     Dates: start: 20240812
  78. VINBLASTINE SULFATE [Suspect]
     Active Substance: VINBLASTINE SULFATE
     Dates: start: 20240812
  79. VINBLASTINE SULFATE [Suspect]
     Active Substance: VINBLASTINE SULFATE
     Route: 042
     Dates: start: 20240812
  80. VINBLASTINE SULFATE [Suspect]
     Active Substance: VINBLASTINE SULFATE
     Route: 042
     Dates: start: 20240812
  81. VINBLASTINE SULFATE [Suspect]
     Active Substance: VINBLASTINE SULFATE
     Dosage: 10.4 MILLIGRAM, QD
  82. VINBLASTINE SULFATE [Suspect]
     Active Substance: VINBLASTINE SULFATE
     Dosage: 10.4 MILLIGRAM, QD
  83. VINBLASTINE SULFATE [Suspect]
     Active Substance: VINBLASTINE SULFATE
     Dosage: 10.4 MILLIGRAM, QD
     Route: 042
  84. VINBLASTINE SULFATE [Suspect]
     Active Substance: VINBLASTINE SULFATE
     Dosage: 10.4 MILLIGRAM, QD
     Route: 042
  85. DACARBAZINE [Suspect]
     Active Substance: DACARBAZINE
     Indication: Hodgkin^s disease
     Dosage: 650 MILLIGRAM, QD (CYCLE)
     Dates: start: 20240812
  86. DACARBAZINE [Suspect]
     Active Substance: DACARBAZINE
     Dosage: 650 MILLIGRAM, QD (CYCLE)
     Dates: start: 20240812
  87. DACARBAZINE [Suspect]
     Active Substance: DACARBAZINE
     Dosage: 650 MILLIGRAM, QD (CYCLE)
     Route: 042
     Dates: start: 20240812
  88. DACARBAZINE [Suspect]
     Active Substance: DACARBAZINE
     Dosage: 650 MILLIGRAM, QD (CYCLE)
     Route: 042
     Dates: start: 20240812
  89. DACARBAZINE [Suspect]
     Active Substance: DACARBAZINE
  90. DACARBAZINE [Suspect]
     Active Substance: DACARBAZINE
  91. DACARBAZINE [Suspect]
     Active Substance: DACARBAZINE
     Route: 042
  92. DACARBAZINE [Suspect]
     Active Substance: DACARBAZINE
     Route: 042
  93. MORPHINE SULFATE [Suspect]
     Active Substance: MORPHINE SULFATE
     Indication: Pain
     Dosage: 20 MILLIGRAM, QD
     Dates: start: 20240923
  94. MORPHINE SULFATE [Suspect]
     Active Substance: MORPHINE SULFATE
     Dosage: 20 MILLIGRAM, QD
     Route: 048
     Dates: start: 20240923
  95. MORPHINE SULFATE [Suspect]
     Active Substance: MORPHINE SULFATE
     Dosage: 20 MILLIGRAM, QD
     Route: 048
     Dates: start: 20240923
  96. MORPHINE SULFATE [Suspect]
     Active Substance: MORPHINE SULFATE
     Dosage: 20 MILLIGRAM, QD
     Dates: start: 20240923
  97. MORPHINE SULFATE [Suspect]
     Active Substance: MORPHINE SULFATE
     Route: 048
  98. MORPHINE SULFATE [Suspect]
     Active Substance: MORPHINE SULFATE
     Route: 048
  99. MORPHINE SULFATE [Suspect]
     Active Substance: MORPHINE SULFATE
  100. MORPHINE SULFATE [Suspect]
     Active Substance: MORPHINE SULFATE
  101. MORPHINE SULFATE [Suspect]
     Active Substance: MORPHINE SULFATE
  102. MORPHINE SULFATE [Suspect]
     Active Substance: MORPHINE SULFATE
     Route: 048
  103. MORPHINE SULFATE [Suspect]
     Active Substance: MORPHINE SULFATE
  104. MORPHINE SULFATE [Suspect]
     Active Substance: MORPHINE SULFATE
     Route: 048
  105. ONDANSETRON [Suspect]
     Active Substance: ONDANSETRON
     Indication: Vomiting
     Dosage: 6 DOSAGE FORM, Q2WEEKS
     Dates: start: 20240812
  106. ONDANSETRON [Suspect]
     Active Substance: ONDANSETRON
     Dosage: 6 DOSAGE FORM, Q2WEEKS
     Dates: start: 20240812
  107. ONDANSETRON [Suspect]
     Active Substance: ONDANSETRON
     Dosage: 6 DOSAGE FORM, Q2WEEKS
     Route: 048
     Dates: start: 20240812
  108. ONDANSETRON [Suspect]
     Active Substance: ONDANSETRON
     Dosage: 6 DOSAGE FORM, Q2WEEKS
     Route: 048
     Dates: start: 20240812
  109. ONDANSETRON [Suspect]
     Active Substance: ONDANSETRON
     Dosage: 6 DOSAGE FORM, Q2WEEKS
  110. ONDANSETRON [Suspect]
     Active Substance: ONDANSETRON
     Dosage: 6 DOSAGE FORM, Q2WEEKS
  111. ONDANSETRON [Suspect]
     Active Substance: ONDANSETRON
     Dosage: 6 DOSAGE FORM, Q2WEEKS
     Route: 048
  112. ONDANSETRON [Suspect]
     Active Substance: ONDANSETRON
     Dosage: 6 DOSAGE FORM, Q2WEEKS
     Route: 048
  113. BACTRIM [Suspect]
     Active Substance: SULFAMETHOXAZOLE\TRIMETHOPRIM
     Indication: Infection prophylaxis
     Dosage: 3 DOSAGE FORM, Q2W, 3 DOSAGE FORM, QOW
     Dates: start: 20240812
  114. BACTRIM [Suspect]
     Active Substance: SULFAMETHOXAZOLE\TRIMETHOPRIM
     Dosage: 3 DOSAGE FORM, Q2W, 3 DOSAGE FORM, QOW
     Dates: start: 20240812
  115. BACTRIM [Suspect]
     Active Substance: SULFAMETHOXAZOLE\TRIMETHOPRIM
     Dosage: 3 DOSAGE FORM, Q2W, 3 DOSAGE FORM, QOW
     Route: 048
     Dates: start: 20240812
  116. BACTRIM [Suspect]
     Active Substance: SULFAMETHOXAZOLE\TRIMETHOPRIM
     Dosage: 3 DOSAGE FORM, Q2W, 3 DOSAGE FORM, QOW
     Route: 048
     Dates: start: 20240812
  117. BACTRIM [Suspect]
     Active Substance: SULFAMETHOXAZOLE\TRIMETHOPRIM
     Dosage: 3 DOSAGE FORM, QW
  118. BACTRIM [Suspect]
     Active Substance: SULFAMETHOXAZOLE\TRIMETHOPRIM
     Dosage: 3 DOSAGE FORM, QW
  119. BACTRIM [Suspect]
     Active Substance: SULFAMETHOXAZOLE\TRIMETHOPRIM
     Dosage: 3 DOSAGE FORM, QW
     Route: 048
  120. BACTRIM [Suspect]
     Active Substance: SULFAMETHOXAZOLE\TRIMETHOPRIM
     Dosage: 3 DOSAGE FORM, QW
     Route: 048
  121. LEUCOVORIN CALCIUM [Suspect]
     Active Substance: LEUCOVORIN CALCIUM
     Indication: Vitamin supplementation
     Dosage: 2 DOSAGE FORM, 1/WEEK
     Dates: start: 20240812
  122. LEUCOVORIN CALCIUM [Suspect]
     Active Substance: LEUCOVORIN CALCIUM
     Indication: Vitamin supplementation
     Dosage: 2 DOSAGE FORM, 1/WEEK
     Route: 048
     Dates: start: 20240812
  123. LEUCOVORIN CALCIUM [Suspect]
     Active Substance: LEUCOVORIN CALCIUM
     Dosage: 2 DOSAGE FORM, 1/WEEK
     Route: 048
     Dates: start: 20240812
  124. LEUCOVORIN CALCIUM [Suspect]
     Active Substance: LEUCOVORIN CALCIUM
     Dosage: 2 DOSAGE FORM, 1/WEEK
     Dates: start: 20240812
  125. LEUCOVORIN CALCIUM [Suspect]
     Active Substance: LEUCOVORIN CALCIUM
     Indication: Vitamin supplementation
     Dosage: 2 DOSAGE FORM, WEEKLY
     Dates: start: 20240812
  126. LEUCOVORIN CALCIUM [Suspect]
     Active Substance: LEUCOVORIN CALCIUM
     Dosage: 2 DOSAGE FORM, WEEKLY
     Dates: start: 20240812
  127. LEUCOVORIN CALCIUM [Suspect]
     Active Substance: LEUCOVORIN CALCIUM
     Dosage: 2 DOSAGE FORM, WEEKLY
     Route: 048
     Dates: start: 20240812
  128. LEUCOVORIN CALCIUM [Suspect]
     Active Substance: LEUCOVORIN CALCIUM
     Dosage: 2 DOSAGE FORM, WEEKLY
     Route: 048
     Dates: start: 20240812
  129. LEUCOVORIN CALCIUM [Suspect]
     Active Substance: LEUCOVORIN CALCIUM
     Dosage: 2 DOSAGE FORM, QW
  130. LEUCOVORIN CALCIUM [Suspect]
     Active Substance: LEUCOVORIN CALCIUM
     Dosage: 2 DOSAGE FORM, QW
  131. LEUCOVORIN CALCIUM [Suspect]
     Active Substance: LEUCOVORIN CALCIUM
     Dosage: 2 DOSAGE FORM, QW
     Route: 048
  132. LEUCOVORIN CALCIUM [Suspect]
     Active Substance: LEUCOVORIN CALCIUM
     Dosage: 2 DOSAGE FORM, QW
     Route: 048
  133. VINBLASTINE SULFATE [Suspect]
     Active Substance: VINBLASTINE SULFATE
     Indication: Hodgkin^s disease
     Dosage: 10.4 MILLIGRAM, QD
     Route: 042
     Dates: start: 20240812
  134. VINBLASTINE SULFATE [Suspect]
     Active Substance: VINBLASTINE SULFATE
     Dosage: 10.4 MILLIGRAM, QD
     Dates: start: 20240812
  135. VINBLASTINE SULFATE [Suspect]
     Active Substance: VINBLASTINE SULFATE
     Dosage: 10.4 MILLIGRAM, QD
     Dates: start: 20240812
  136. VINBLASTINE SULFATE [Suspect]
     Active Substance: VINBLASTINE SULFATE
     Dosage: 10.4 MILLIGRAM, QD
     Route: 042
     Dates: start: 20240812
  137. VINBLASTINE SULFATE [Suspect]
     Active Substance: VINBLASTINE SULFATE
     Route: 042
  138. VINBLASTINE SULFATE [Suspect]
     Active Substance: VINBLASTINE SULFATE
  139. VINBLASTINE SULFATE [Suspect]
     Active Substance: VINBLASTINE SULFATE
  140. VINBLASTINE SULFATE [Suspect]
     Active Substance: VINBLASTINE SULFATE
     Route: 042
  141. DOXORUBICIN [Suspect]
     Active Substance: DOXORUBICIN
     Indication: Hodgkin^s disease
     Dosage: 43 MILLIGRAM,DOXORUBICINE
     Route: 042
     Dates: start: 20240812
  142. DOXORUBICIN [Suspect]
     Active Substance: DOXORUBICIN
     Dosage: 43 MILLIGRAM,DOXORUBICINE
     Dates: start: 20240812
  143. DOXORUBICIN [Suspect]
     Active Substance: DOXORUBICIN
     Dosage: 43 MILLIGRAM,DOXORUBICINE
     Dates: start: 20240812
  144. DOXORUBICIN [Suspect]
     Active Substance: DOXORUBICIN
     Dosage: 43 MILLIGRAM,DOXORUBICINE
     Route: 042
     Dates: start: 20240812
  145. DOXORUBICIN [Suspect]
     Active Substance: DOXORUBICIN
     Dosage: 43 MILLIGRAM, QD
     Route: 042
  146. DOXORUBICIN [Suspect]
     Active Substance: DOXORUBICIN
     Dosage: 43 MILLIGRAM, QD
  147. DOXORUBICIN [Suspect]
     Active Substance: DOXORUBICIN
     Dosage: 43 MILLIGRAM, QD
  148. DOXORUBICIN [Suspect]
     Active Substance: DOXORUBICIN
     Dosage: 43 MILLIGRAM, QD
     Route: 042

REACTIONS (2)
  - Neuropathy peripheral [Recovering/Resolving]
  - Interstitial lung disease [Not Recovered/Not Resolved]

NARRATIVE: CASE EVENT DATE: 20241008
